FAERS Safety Report 24237826 (Version 3)
Quarter: 2024Q4

REPORT INFORMATION
  Report Type: Spontaneous
  Country: US (occurrence: US)
  Receive Date: 20240822
  Receipt Date: 20241028
  Transmission Date: 20250114
  Serious: No
  Sender: GLAXOSMITHKLINE
  Company Number: US-GSK-US2024AMR102038

PATIENT
  Sex: Female

DRUGS (1)
  1. NUCALA [Suspect]
     Active Substance: MEPOLIZUMAB
     Indication: Nasal polyps
     Dosage: 100 MG, Q4W
     Dates: start: 20230501

REACTIONS (4)
  - Injection site bruising [Recovered/Resolved]
  - Epistaxis [Unknown]
  - Injection site swelling [Not Recovered/Not Resolved]
  - Respiratory tract congestion [Unknown]
